FAERS Safety Report 4651245-7 (Version None)
Quarter: 2005Q2

REPORT INFORMATION
  Report Type: 
  Country: None (occurrence: None)
  Receive Date: 20050503
  Receipt Date: 20050422
  Transmission Date: 20051028
  Serious: Yes (Other)
  Sender: FDA-Public Use
  Company Number: PHBS2005CA05860

PATIENT
  Sex: Female

DRUGS (3)
  1. LOPRESSOR [Suspect]
     Indication: HYPERTENSION
     Dosage: 100 MG/DAY
     Route: 048
  2. LOPRESSOR [Suspect]
     Dosage: UNK, UNK
     Route: 048
  3. LOPRESSOR [Suspect]
     Dosage: 3 DF
     Route: 042

REACTIONS (1)
  - TORSADE DE POINTES [None]
